FAERS Safety Report 9011740 (Version 2)
Quarter: 2013Q1

REPORT INFORMATION
  Report Type: Spontaneous
  Country: US (occurrence: None)
  Receive Date: 20121228
  Receipt Date: 20130109
  Transmission Date: 20140127
  Serious: Yes (Death)
  Sender: FDA-Public Use
  Company Number: DKLU1087375

PATIENT
  Age: 11 Year
  Sex: Male

DRUGS (4)
  1. SABRIL (FOR ORAL SOLUTION) (SABRIL) (VIGABATRIN) (500  MG, POWDER FOR ORAL SOLUTION) [Suspect]
     Indication: LENNOX-GASTAUT SYNDROME
     Route: 048
     Dates: start: 20100630
  2. SABRIL (FOR ORAL SOLUTION) (SABRIL) (VIGABATRIN) (500  MG, POWDER FOR ORAL SOLUTION) [Suspect]
     Indication: EPILEPSY
     Route: 048
     Dates: start: 20100630
  3. KEPPRA (LEVETIRACETAM) [Concomitant]
  4. LAMICTAL (LAMOTRIGINE) TABLET [Concomitant]

REACTIONS (1)
  - Pneumonia [None]
